FAERS Safety Report 7673616-7 (Version None)
Quarter: 2011Q3

REPORT INFORMATION
  Report Type: 
  Country: None (occurrence: None)
  Receive Date: 20110804
  Receipt Date: 20110720
  Transmission Date: 20111222
  Serious: Yes (Hospitalization, Other)
  Sender: FDA-Public Use
  Company Number: 2011MA009199

PATIENT
  Age: 61 Year
  Sex: Male

DRUGS (1)
  1. CARBAMAZEPINE [Suspect]
     Indication: CONVULSION

REACTIONS (4)
  - SINUSITIS [None]
  - HAEMOPHILUS TEST POSITIVE [None]
  - DIFFUSE PANBRONCHIOLITIS [None]
  - HYPOGAMMAGLOBULINAEMIA [None]
